FAERS Safety Report 4775706-5 (Version None)
Quarter: 2005Q3

REPORT INFORMATION
  Report Type: 
  Country: None (occurrence: None)
  Receive Date: 20050921
  Receipt Date: 20050914
  Transmission Date: 20060218
  Serious: Yes (Other)
  Sender: FDA-Public Use
  Company Number: 005666

PATIENT
  Sex: Female

DRUGS (5)
  1. MEDROXYPROGESTERONE [Suspect]
     Dosage: 2.5 MG, ORAL
     Route: 048
     Dates: start: 19930601, end: 19980701
  2. PROVERA [Suspect]
     Dosage: 2.5 MG, ORAL
     Route: 048
     Dates: start: 19930601, end: 19980701
  3. ORTHO-EST [Suspect]
     Dosage: 0.625 MG, ORAL
     Route: 048
     Dates: start: 19930601, end: 19950101
  4. PREMARIN [Suspect]
     Dosage: 0.9 MG, ORAL
     Route: 048
     Dates: start: 19950101, end: 19980701
  5. PREMPRO [Suspect]
     Dosage: ORAL
     Route: 048
     Dates: start: 19980701, end: 20020906

REACTIONS (3)
  - BREAST CANCER FEMALE [None]
  - OESTROGEN RECEPTOR ASSAY POSITIVE [None]
  - PROGESTERONE RECEPTOR ASSAY POSITIVE [None]
